FAERS Safety Report 4638161-1 (Version None)
Quarter: 2005Q2

REPORT INFORMATION
  Report Type: 
  Country: None (occurrence: None)
  Receive Date: 20050415
  Receipt Date: 20050324
  Transmission Date: 20051028
  Serious: Yes (Other)
  Sender: FDA-Public Use
  Company Number: USA050392918

PATIENT
  Age: 56 Year
  Sex: Female

DRUGS (12)
  1. GEMZAR [Suspect]
     Indication: BREAST CANCER METASTATIC
     Dosage: 2670 MG
     Dates: start: 20040930, end: 20050324
  2. MULTI-VITAMIN [Concomitant]
  3. CALCIUM GLUCONATE [Concomitant]
  4. COUMADIN [Concomitant]
  5. OMEGA - 3 FISH OIL [Concomitant]
  6. AMBIEN [Concomitant]
  7. PROTONIX [Concomitant]
  8. FLEXERIL [Concomitant]
  9. LEXAPRO [Concomitant]
  10. PAXIL [Concomitant]
  11. CARBOPLATIN [Concomitant]
  12. TAXOTERE [Concomitant]

REACTIONS (8)
  - ANAEMIA [None]
  - BLOOD LACTATE DEHYDROGENASE INCREASED [None]
  - GRANULOCYTE COUNT DECREASED [None]
  - HAEMOLYTIC ANAEMIA [None]
  - RED BLOOD CELL SCHISTOCYTES PRESENT [None]
  - THROMBOCYTOPENIA [None]
  - THROMBOTIC THROMBOCYTOPENIC PURPURA [None]
  - WHITE BLOOD CELL COUNT DECREASED [None]
